FAERS Safety Report 5290614-1 (Version None)
Quarter: 2007Q2

REPORT INFORMATION
  Report Type: 
  Country: None (occurrence: None)
  Receive Date: 20070405
  Receipt Date: 20070405
  Transmission Date: 20071010
  Serious: No
  Sender: FDA-Public Use
  Company Number: None

PATIENT
  Age: 54 Year
  Sex: Male
  Weight: 130.7 kg

DRUGS (9)
  1. SORAFENIB [Suspect]
     Indication: RENAL CELL CARCINOMA STAGE UNSPECIFIED
     Dosage: 400MG BID, PO
     Route: 048
     Dates: start: 20060301, end: 20060801
  2. ALPRAZOLAM [Concomitant]
  3. QUININE [Concomitant]
  4. ONDANSETRON [Concomitant]
  5. MICARDIS/HCTZ [Concomitant]
  6. DOCUSATE [Concomitant]
  7. LESCOL [Concomitant]
  8. ACETAMINOPHEN [Concomitant]
  9. LEVOFLOXACIN [Concomitant]

REACTIONS (9)
  - ARTHRALGIA [None]
  - DIARRHOEA [None]
  - HEADACHE [None]
  - HYPOPHOSPHATAEMIA [None]
  - IMPAIRED HEALING [None]
  - NAUSEA [None]
  - PNEUMONIA [None]
  - POST PROCEDURAL DISCHARGE [None]
  - POSTOPERATIVE WOUND COMPLICATION [None]
